FAERS Safety Report 15266276 (Version 3)
Quarter: 2018Q3

REPORT INFORMATION
  Report Type: Spontaneous
  Country: ZA (occurrence: ZA)
  Receive Date: 20180810
  Receipt Date: 20180906
  Transmission Date: 20181010
  Serious: Yes (Death, Hospitalization, Other)
  Sender: FDA-Public Use
  Company Number: ZA-PFIZER INC-2018316482

PATIENT
  Age: 79 Year
  Sex: Male

DRUGS (18)
  1. DORMONOCT [Suspect]
     Active Substance: LOPRAZOLAM
     Dosage: 2 MG, UNK
  2. SEREFLO [Suspect]
     Active Substance: FLUTICASONE PROPIONATE\SALMETEROL XINAFOATE
     Dosage: UNK
  3. SIMVASTATIN. [Suspect]
     Active Substance: SIMVASTATIN
     Dosage: UNK
  4. SIMVACOR [Suspect]
     Active Substance: SIMVASTATIN
     Dosage: 20 MG, UNK
  5. BE?TABS FOLIC ACID [Suspect]
     Active Substance: FOLIC ACID
     Dosage: 5 MG, UNK
  6. PURICOS [Suspect]
     Active Substance: ALLOPURINOL
     Dosage: UNK
  7. VENTOLIN [Suspect]
     Active Substance: ALBUTEROL SULFATE
     Dosage: 5 MG, UNK
  8. SPIRACTIN /00006201/ [Suspect]
     Active Substance: SPIRONOLACTONE
  9. LISINOPRIL. [Suspect]
     Active Substance: LISINOPRIL
     Dosage: UNK
  10. ELTROXIN [Suspect]
     Active Substance: LEVOTHYROXINE
     Dosage: UNK
  11. VENLOR XR [Suspect]
     Active Substance: VENLAFAXINE HYDROCHLORIDE
     Dosage: UNK
  12. WARFARIN [Suspect]
     Active Substance: WARFARIN
     Dosage: UNK
  13. VERAHEXAL [Suspect]
     Active Substance: VERAPAMIL HYDROCHLORIDE
     Dosage: UNK
  14. METHOTREXATE SODIUM. [Suspect]
     Active Substance: METHOTREXATE SODIUM
     Dosage: UNK
  15. MIRADEP [Suspect]
     Active Substance: MIRTAZAPINE
     Dosage: UNK
  16. MIRADEP [Suspect]
     Active Substance: MIRTAZAPINE
     Dosage: UNK
  17. TRAMAZAC CO [Suspect]
     Active Substance: ACETAMINOPHEN\TRAMADOL
     Dosage: UNK, UNK (37.5/325 MG)
  18. SINOPREN [Suspect]
     Active Substance: LISINOPRIL
     Dosage: 20 MG, UNK

REACTIONS (5)
  - Lung disorder [Unknown]
  - Loss of consciousness [Recovered/Resolved]
  - Hypotension [Not Recovered/Not Resolved]
  - Renal disorder [Unknown]
  - Death [Fatal]

NARRATIVE: CASE EVENT DATE: 20180903
